FAERS Safety Report 5139910-9 (Version None)
Quarter: 2006Q4

REPORT INFORMATION
  Report Type: 
  Country: None (occurrence: None)
  Receive Date: 20061031
  Receipt Date: 20061025
  Transmission Date: 20070319
  Serious: Yes (Death)
  Sender: FDA-Public Use
  Company Number: US-BAYER-200616167BWH

PATIENT
  Age: 79 Year
  Sex: Female

DRUGS (15)
  1. NEXAVAR [Suspect]
     Indication: RENAL CELL CARCINOMA STAGE UNSPECIFIED
     Dosage: TOTAL DAILY DOSE: 800 MG  UNIT DOSE: 200 MG
     Route: 048
     Dates: start: 20060825, end: 20061017
  2. LEVOTHYROXINE SODIUM [Concomitant]
     Indication: HYPOTHYROIDISM
     Route: 048
  3. METOPROLOL TARTRATE [Concomitant]
     Route: 048
  4. TRIAMTERENE [Concomitant]
     Route: 048
  5. HYDROCHLOROTHIAZIDE [Concomitant]
     Route: 048
  6. PULMICORT [Concomitant]
     Indication: CHRONIC OBSTRUCTIVE PULMONARY DISEASE
     Dosage: TOTAL DAILY DOSE: 2 PUFF
     Route: 055
  7. MULTI-VITAMIN [Concomitant]
     Route: 048
  8. CALCIUM CARBONATE [Concomitant]
     Dosage: TOTAL DAILY DOSE: 1200 MG  UNIT DOSE: 600 MG
     Route: 048
  9. VITAMIN D [Concomitant]
     Dosage: TOTAL DAILY DOSE: 400 MG  UNIT DOSE: 200 MG
     Route: 048
  10. AMBIEN [Concomitant]
     Dosage: TOTAL DAILY DOSE: 5 MG
  11. DULCOLAX [Concomitant]
     Indication: CONSTIPATION PROPHYLAXIS
  12. REFRESH PLUS [Concomitant]
     Indication: DRY EYE
     Route: 047
  13. IRON [Concomitant]
     Indication: ANAEMIA
     Route: 048
  14. ACETAMINOPHEN [Concomitant]
  15. VITAMIN B6 [Concomitant]
     Dosage: TOTAL DAILY DOSE: 200 MG
     Route: 048

REACTIONS (3)
  - BACK PAIN [None]
  - CARDIAC ARREST [None]
  - MYOCARDIAL INFARCTION [None]
